FAERS Safety Report 4602861-X (Version None)
Quarter: 2005Q1

REPORT INFORMATION
  Report Type: 
  Country: None (occurrence: None)
  Receive Date: 20050307
  Receipt Date: 20050301
  Transmission Date: 20050727
  Serious: Yes (Life-Threatening, Other)
  Sender: FDA-Public Use
  Company Number: 200510212BVD

PATIENT
  Age: 46 Year
  Sex: Male
  Weight: 63.3 kg

DRUGS (2)
  1. CIPROFLOXACIN [Suspect]
     Indication: SEPSIS
     Dosage: 400 MG, TOTAL DAILY, INTRAVENOUS
     Route: 042
     Dates: start: 20041212, end: 20041217
  2. GENTAMICIN [Concomitant]

REACTIONS (3)
  - LONG QT SYNDROME [None]
  - TACHYCARDIA [None]
  - TORSADE DE POINTES [None]
